FAERS Safety Report 11127083 (Version 2)
Quarter: 2015Q2

REPORT INFORMATION
  Report Type: Spontaneous
  Country: FR (occurrence: FR)
  Receive Date: 20150521
  Receipt Date: 20150528
  Transmission Date: 20150821
  Serious: Yes (Other)
  Sender: FDA-Public Use
  Company Number: FR-009507513-1505FRA006640

PATIENT
  Sex: Male
  Weight: 75 kg

DRUGS (2)
  1. EZETROL [Suspect]
     Active Substance: EZETIMIBE
     Indication: HYPERCHOLESTEROLAEMIA
     Dosage: 1 DF, QD
     Route: 048
     Dates: start: 2003
  2. SINTROM [Concomitant]
     Active Substance: ACENOCOUMAROL
     Indication: THROMBOSIS PROPHYLAXIS
     Dosage: 1/2 TO 3/4 TABLET ALTERNATIVELY
     Route: 048
     Dates: start: 2010

REACTIONS (5)
  - Congenital heart valve disorder [Unknown]
  - Limb discomfort [Recovered/Resolved]
  - International normalised ratio increased [Unknown]
  - International normalised ratio fluctuation [Unknown]
  - Pain in extremity [Unknown]

NARRATIVE: CASE EVENT DATE: 2005
